FAERS Safety Report 16165579 (Version 1)
Quarter: 2019Q2

REPORT INFORMATION
  Report Type: Spontaneous
  Country: US (occurrence: US)
  Receive Date: 20190405
  Receipt Date: 20190405
  Transmission Date: 20190711
  Serious: No
  Sender: FDA-Public Use
  Company Number: US-SHIRE-SPV1-2006-00869

PATIENT
  Age: 48 Year
  Sex: Male
  Weight: 132.88 kg

DRUGS (8)
  1. TOPAMAX [Concomitant]
     Active Substance: TOPIRAMATE
     Dosage: 150 MG TWICE DAILY
     Dates: start: 200607
  2. DILTIAZEM                          /00489702/ [Concomitant]
     Active Substance: DILTIAZEM
     Indication: HYPERTENSION
  3. CARBATROL [Suspect]
     Active Substance: CARBAMAZEPINE
     Dosage: 900 MG DAILY
     Dates: start: 200607, end: 20060913
  4. COUMADIN [Suspect]
     Active Substance: WARFARIN SODIUM
     Indication: DEEP VEIN THROMBOSIS
     Dosage: 15 MG DAILY
     Dates: start: 200607
  5. CARBATROL [Suspect]
     Active Substance: CARBAMAZEPINE
     Indication: SEIZURE
     Dosage: 1200 MG DAILY
     Route: 048
     Dates: start: 20060914
  6. COUMADIN [Suspect]
     Active Substance: WARFARIN SODIUM
     Dosage: 11 MG DAILY
     Dates: start: 200509
  7. KEPPRA [Concomitant]
     Active Substance: LEVETIRACETAM
     Indication: SEIZURE
     Dates: end: 200607
  8. VYTORIN [Concomitant]
     Active Substance: EZETIMIBE\SIMVASTATIN

REACTIONS (4)
  - Condition aggravated [None]
  - Drug interaction [Unknown]
  - Tremor [Not Recovered/Not Resolved]
  - Somnolence [Recovered/Resolved]

NARRATIVE: CASE EVENT DATE: 20060914
